FAERS Safety Report 5370417-X (Version None)
Quarter: 2007Q2

REPORT INFORMATION
  Report Type: 
  Country: None (occurrence: None)
  Receive Date: 20070626
  Receipt Date: 20070119
  Transmission Date: 20071010
  Serious: No
  Sender: FDA-Public Use
  Company Number: US-AMGEN-US207691

PATIENT
  Sex: Female
  Weight: 52.7 kg

DRUGS (5)
  1. ARANESP [Suspect]
     Indication: ANAEMIA
     Route: 058
     Dates: start: 20070117
  2. CARDURA [Concomitant]
     Route: 065
  3. COZAAR [Concomitant]
     Route: 065
  4. VERAPAMIL [Concomitant]
  5. PLAVIX [Concomitant]
     Route: 065

REACTIONS (2)
  - DYSPNOEA [None]
  - HYPERSENSITIVITY [None]
